FAERS Safety Report 4666373-X (Version None)
Quarter: 2005Q2

REPORT INFORMATION
  Report Type: 
  Country: None (occurrence: None)
  Receive Date: 20050519
  Receipt Date: 20050510
  Transmission Date: 20051028
  Serious: Yes (Hospitalization)
  Sender: FDA-Public Use
  Company Number: US-BRISTOL-MYERS SQUIBB COMPANY-12963484

PATIENT

DRUGS (1)
  1. AVALIDE [Suspect]
     Route: 048

REACTIONS (3)
  - ALVEOLITIS ALLERGIC [None]
  - LUNG INFILTRATION [None]
  - LYMPHADENOPATHY [None]
